FAERS Safety Report 6541953-5 (Version None)
Quarter: 2010Q1

REPORT INFORMATION
  Report Type: 
  Country: None (occurrence: None)
  Receive Date: 20100119
  Receipt Date: 20100112
  Transmission Date: 20100710
  Serious: Yes (Life-Threatening)
  Sender: FDA-Public Use
  Company Number: US-ASTRAZENECA-2009SE21256

PATIENT
  Age: 22227 Day
  Sex: Female
  Weight: 110.7 kg

DRUGS (1)
  1. SYMBICORT [Suspect]
     Route: 055
     Dates: start: 20090401

REACTIONS (2)
  - CHRONIC OBSTRUCTIVE PULMONARY DISEASE [None]
  - LUNG NEOPLASM MALIGNANT [None]
